FAERS Safety Report 13935546 (Version 1)
Quarter: 2017Q3

REPORT INFORMATION
  Report Type: Spontaneous
  Country: US (occurrence: None)
  Receive Date: 20170904
  Receipt Date: 20170904
  Transmission Date: 20171127
  Serious: No
  Sender: FDA-Public Use
  Company Number: None

PATIENT
  Age: 70 Year
  Sex: Female

DRUGS (1)
  1. INLYTA [Suspect]
     Active Substance: AXITINIB

REACTIONS (4)
  - Dysphonia [None]
  - Pain in extremity [None]
  - Oropharyngeal pain [None]
  - Fatigue [None]

NARRATIVE: CASE EVENT DATE: 20170902
